FAERS Safety Report 8210272-3 (Version None)
Quarter: 2012Q1

REPORT INFORMATION
  Report Type: 
  Country: None (occurrence: None)
  Receive Date: 20120314
  Receipt Date: 20111121
  Transmission Date: 20120608
  Serious: No
  Sender: FDA-Public Use
  Company Number: US-ASTRAZENECA-2011SE70612

PATIENT
  Age: 51 Year
  Sex: Male
  Weight: 95.3 kg

DRUGS (8)
  1. METOPROLOL SUCCINATE [Suspect]
     Indication: HYPERTENSION
     Route: 065
  2. METFORMIN [Concomitant]
  3. CLONIDINE [Suspect]
     Indication: HYPERTENSION
     Route: 065
  4. HYDROCHLOROTHIAZIDE [Concomitant]
  5. DILTIAZEM HCL [Concomitant]
  6. SIMVASTATIN [Concomitant]
  7. VALSARTAN [Concomitant]
  8. TRICOR [Concomitant]

REACTIONS (3)
  - DRY MOUTH [None]
  - FATIGUE [None]
  - HYPERTENSION [None]
